FAERS Safety Report 6648421-0 (Version None)
Quarter: 2010Q1

REPORT INFORMATION
  Report Type: 
  Country: None (occurrence: None)
  Receive Date: 20100324
  Receipt Date: 20100222
  Transmission Date: 20100710
  Serious: Yes (Other)
  Sender: FDA-Public Use
  Company Number: NL-ROCHE-692458

PATIENT
  Age: 50 Year
  Sex: Female

DRUGS (2)
  1. AVASTIN [Suspect]
     Route: 042
     Dates: start: 20091001
  2. PACLITAXEL [Suspect]
     Route: 042
     Dates: start: 20091001

REACTIONS (1)
  - DISEASE PROGRESSION [None]
